FAERS Safety Report 24940482 (Version 2)
Quarter: 2025Q4

REPORT INFORMATION
  Report Type: Report from Study
  Country: GB (occurrence: GB)
  Receive Date: 20250207
  Receipt Date: 20251021
  Transmission Date: 20260117
  Serious: Yes (Life-Threatening, Hospitalization)
  Sender: NOVARTIS
  Company Number: GB-002147023-NVSC2025GB018980

PATIENT
  Age: 74 Year
  Sex: Male

DRUGS (2)
  1. LUTATHERA [Suspect]
     Active Substance: LUTETIUM OXODOTREOTIDE LU-177
     Indication: Product used for unknown indication
     Dosage: 7130 MBQ
     Route: 042
     Dates: start: 20220817, end: 20230315
  2. OXYCODONE [Concomitant]
     Active Substance: OXYCODONE
     Indication: Pain in extremity
     Dosage: 5 MG
     Route: 065
     Dates: start: 20250108, end: 202501

REACTIONS (11)
  - Myelodysplastic syndrome [Not Recovered/Not Resolved]
  - Gout [Recovered/Resolved]
  - Pain in extremity [Recovering/Resolving]
  - Pancytopenia [Recovering/Resolving]
  - Blood glucose increased [Recovering/Resolving]
  - Pyrexia [Recovering/Resolving]
  - Malaise [Recovering/Resolving]
  - Infection [Recovering/Resolving]
  - Syncope [Recovered/Resolved]
  - Neutropenic sepsis [Recovered/Resolved]
  - Arrhythmia [Recovered/Resolved]

NARRATIVE: CASE EVENT DATE: 20241201
